FAERS Safety Report 25766880 (Version 1)
Quarter: 2025Q3

REPORT INFORMATION
  Report Type: Spontaneous
  Country: CN (occurrence: CN)
  Receive Date: 20250905
  Receipt Date: 20250905
  Transmission Date: 20251021
  Serious: Yes (Life-Threatening, Other)
  Sender: BAYER HEALTHCARE PHARMACEUTICALS INC.
  Company Number: CN-BAYER-2025A117831

PATIENT
  Age: 30 Year
  Sex: Female

DRUGS (3)
  1. GADOBUTROL [Suspect]
     Active Substance: GADOBUTROL
     Indication: Magnetic resonance imaging head
     Route: 042
     Dates: start: 20250827, end: 20250827
  2. GADOBUTROL [Suspect]
     Active Substance: GADOBUTROL
     Indication: Magnetic resonance imaging neck
  3. GADOBUTROL [Suspect]
     Active Substance: GADOBUTROL
     Indication: Relapsing-remitting multiple sclerosis

REACTIONS (9)
  - Contrast media allergy [Recovering/Resolving]
  - Blood pressure immeasurable [Recovering/Resolving]
  - Amaurosis [Recovering/Resolving]
  - Dizziness [Recovering/Resolving]
  - Erythema [Recovering/Resolving]
  - Hypoaesthesia [Recovering/Resolving]
  - Abdominal pain lower [Recovering/Resolving]
  - Piloerection [Recovering/Resolving]
  - Cold sweat [Recovering/Resolving]

NARRATIVE: CASE EVENT DATE: 20250827
